FAERS Safety Report 8024106-3 (Version None)
Quarter: 2012Q1

REPORT INFORMATION
  Report Type: 
  Country: None (occurrence: None)
  Receive Date: 20120103
  Receipt Date: 20111219
  Transmission Date: 20120608
  Serious: Yes (Life-Threatening, Hospitalization, Other)
  Sender: FDA-Public Use
  Company Number: 2011MA017986

PATIENT
  Age: 30 Year
  Sex: Male

DRUGS (8)
  1. DIVALPROEX SODIUM [Suspect]
     Indication: EPILEPSY
     Dosage: ;UNK;UNK
  2. TOPIRAMATE [Suspect]
     Indication: EPILEPSY
     Dosage: ;UNK;UNK
  3. ATIVAN [Suspect]
     Indication: EPILEPSY
     Dosage: ;UNK;UNK
  4. PHENOBARBITAL TAB [Suspect]
     Indication: EPILEPSY
     Dosage: ;UNK;UNK
  5. LAMOTRIGINE [Suspect]
     Indication: EPILEPSY
     Dosage: ;UNK;UNK
  6. CLONAZEPAM [Suspect]
     Indication: EPILEPSY
     Dosage: ;UNK;UNK
  7. LEVETIRACETAM [Suspect]
     Indication: EPILEPSY
     Dosage: ;UNK;UNK
  8. PHENYTOIN [Suspect]
     Indication: EPILEPSY
     Dosage: ;UNK;UNK

REACTIONS (8)
  - THROMBOSIS IN DEVICE [None]
  - OEDEMA PERIPHERAL [None]
  - LOSS OF CONSCIOUSNESS [None]
  - DEEP VEIN THROMBOSIS [None]
  - VESSEL PERFORATION [None]
  - COMPLICATION OF DEVICE INSERTION [None]
  - TREATMENT FAILURE [None]
  - EPILEPSY [None]
